FAERS Safety Report 9602033 (Version 2)
Quarter: 2013Q4

REPORT INFORMATION
  Report Type: Report from Study
  Country: US (occurrence: US)
  Receive Date: 20131007
  Receipt Date: 20131007
  Transmission Date: 20140711
  Serious: Yes (Other)
  Sender: FDA-Public Use
  Company Number: US-TEVA-418213USA

PATIENT
  Age: 42 Year
  Sex: Female

DRUGS (17)
  1. COPAXONE [Suspect]
     Indication: MULTIPLE SCLEROSIS
     Dosage: 20 MILLIGRAM DAILY;
     Route: 058
     Dates: start: 20130103
  2. HYDROCHLOROTHIAZIDE [Concomitant]
     Indication: OEDEMA PERIPHERAL
     Dosage: 25 MILLIGRAM DAILY;
     Route: 048
  3. HYDROCHLOROTHIAZIDE [Concomitant]
     Indication: SWELLING FACE
  4. DEXILANT [Concomitant]
     Dosage: 60 MILLIGRAM DAILY;
     Route: 048
  5. NORTRIPTYLINE [Concomitant]
     Dosage: 75 MILLIGRAM DAILY;
     Route: 048
  6. VALIUM [Concomitant]
     Dosage: 5 MILLIGRAM DAILY;
     Route: 048
  7. OXYCODONE HYDROCHLORIDE [Concomitant]
     Dosage: 20 MILLIGRAM DAILY;
     Route: 048
  8. BACLOFEN [Concomitant]
     Dosage: 60 MILLIGRAM DAILY;
     Route: 048
  9. MIRALAX [Concomitant]
     Route: 048
  10. VITAMIN D NOS [Concomitant]
     Dosage: 25000 MICROGRAM DAILY;
     Route: 048
  11. LIDODERM [Concomitant]
     Dosage: 10 PERCENT DAILY;
     Route: 061
  12. COLACE [Concomitant]
     Dosage: 100 MILLIGRAM DAILY;
  13. MORPHINE SULFATE [Concomitant]
     Dosage: 60 MILLIGRAM DAILY;
  14. ASPIRIN [Concomitant]
     Dosage: 81 MILLIGRAM DAILY;
  15. GABAPENTIN [Concomitant]
     Dosage: 2400 MILLIGRAM DAILY;
  16. EFFEXOR [Concomitant]
     Dosage: 150 MILLIGRAM DAILY;
  17. LEVOTHYROXINE SODIUM [Concomitant]
     Dosage: 75 MICROGRAM DAILY;

REACTIONS (1)
  - Fibrin D dimer increased [Unknown]
